FAERS Safety Report 10799694 (Version 1)
Quarter: 2015Q1

REPORT INFORMATION
  Report Type: Report from Study
  Country: US (occurrence: US)
  Receive Date: 20150216
  Receipt Date: 20150216
  Transmission Date: 20150721
  Serious: No
  Sender: FDA-Public Use
  Company Number: US-ABBVIE-14K-163-1242637-00

PATIENT
  Sex: Female

DRUGS (12)
  1. AMLODIPINE [Concomitant]
     Active Substance: AMLODIPINE BESYLATE
     Indication: PRODUCT USED FOR UNKNOWN INDICATION
     Dates: start: 201407
  2. LOSARTAN/HCT [Suspect]
     Active Substance: HYDROCHLOROTHIAZIDE\LOSARTAN POTASSIUM
     Indication: PRODUCT USED FOR UNKNOWN INDICATION
     Dates: end: 201307
  3. PREDNISONE. [Suspect]
     Active Substance: PREDNISONE
     Indication: PRODUCT USED FOR UNKNOWN INDICATION
     Dates: start: 2014
  4. ATORVASTATIN [Concomitant]
     Active Substance: ATORVASTATIN
  5. TRAMADOL [Concomitant]
     Active Substance: TRAMADOL
     Indication: PRODUCT USED FOR UNKNOWN INDICATION
     Dosage: AS REQUIRED
     Dates: start: 2014
  6. CLONIDINE. [Concomitant]
     Active Substance: CLONIDINE
     Indication: PRODUCT USED FOR UNKNOWN INDICATION
  7. FLEXERIL [Concomitant]
     Active Substance: CYCLOBENZAPRINE HYDROCHLORIDE
     Indication: PRODUCT USED FOR UNKNOWN INDICATION
     Dosage: AS REQUIRED
  8. CARVEDILOL. [Concomitant]
     Active Substance: CARVEDILOL
     Indication: PRODUCT USED FOR UNKNOWN INDICATION
  9. ATORVASTATIN [Concomitant]
     Active Substance: ATORVASTATIN
     Indication: PRODUCT USED FOR UNKNOWN INDICATION
  10. HUMIRA [Suspect]
     Active Substance: ADALIMUMAB
     Indication: ANKYLOSING SPONDYLITIS
     Dates: end: 201312
  11. HUMIRA [Suspect]
     Active Substance: ADALIMUMAB
     Dates: start: 2014
  12. METFORMIN [Concomitant]
     Active Substance: METFORMIN HYDROCHLORIDE
     Indication: PRODUCT USED FOR UNKNOWN INDICATION

REACTIONS (13)
  - Swelling face [Unknown]
  - Spinal pain [Unknown]
  - Lip injury [Unknown]
  - Lip swelling [Unknown]
  - Mobility decreased [Unknown]
  - Psoriasis [Unknown]
  - Spinal disorder [Not Recovered/Not Resolved]
  - Ulcer [Unknown]
  - Muscle spasms [Unknown]
  - Tuberculosis [Unknown]
  - Dyspnoea [Unknown]
  - Drug effect incomplete [Unknown]
  - Fungal infection [Unknown]

NARRATIVE: CASE EVENT DATE: 2012
